FAERS Safety Report 4974824-6 (Version None)
Quarter: 2006Q1

REPORT INFORMATION
  Report Type: 
  Country: None (occurrence: None)
  Receive Date: 20060216
  Receipt Date: 20050711
  Transmission Date: 20060701
  Serious: Yes (Hospitalization)
  Sender: FDA-Public Use
  Company Number: 200507IM000293

PATIENT
  Age: 72 Year
  Sex: Female
  Weight: 60.3284 kg

DRUGS (3)
  1. BLINDED THEAPY (INTERFERON GAMMA-1B) [Suspect]
     Indication: IDIOPATHIC PULMONARY FIBROSIS
     Dosage: 200 UG, TIW, SUBCUTANEOUS
     Route: 058
     Dates: start: 20050408
  2. IBUPROFEN [Concomitant]
  3. ESTROGENS SOL/INJ [Concomitant]

REACTIONS (1)
  - BRONCHITIS ACUTE [None]
